FAERS Safety Report 16087178 (Version 1)
Quarter: 2019Q1

REPORT INFORMATION
  Report Type: Spontaneous
  Country: SE (occurrence: SE)
  Receive Date: 20190319
  Receipt Date: 20190319
  Transmission Date: 20190418
  Serious: Yes (Hospitalization, Disabling)
  Sender: FDA-Public Use
  Company Number: SE-TEVA-2019-SE-1024682

PATIENT
  Age: 70 Year
  Sex: Male

DRUGS (8)
  1. INDERAL [Concomitant]
     Active Substance: PROPRANOLOL HYDROCHLORIDE
     Dosage: 80 MILLIGRAM DAILY;
     Dates: start: 20180504
  2. DIVISUN [Concomitant]
  3. ACETYLSALICYLIC ACID [Concomitant]
     Active Substance: ASPIRIN
     Dosage: 75 MILLIGRAM DAILY;
     Dates: start: 20180504
  4. ELIQUIS [Concomitant]
     Active Substance: APIXABAN
     Dates: start: 20180504
  5. ATORVASTATIN TEVA 80 MG FILMDRAGERAD TABLETT [Suspect]
     Active Substance: ATORVASTATIN
     Dates: start: 20180504, end: 20181023
  6. OMEPRAZOLE. [Concomitant]
     Active Substance: OMEPRAZOLE
     Dosage: 20 MILLIGRAM DAILY;
  7. BEHEPAN [Concomitant]
     Active Substance: HYDROXOCOBALAMIN
  8. BRILIQUE [Concomitant]
     Active Substance: TICAGRELOR
     Dates: start: 20180504

REACTIONS (5)
  - Myalgia [Not Recovered/Not Resolved]
  - Paraesthesia [Not Recovered/Not Resolved]
  - Dysstasia [Not Recovered/Not Resolved]
  - Muscular weakness [Not Recovered/Not Resolved]
  - Hypoaesthesia [Not Recovered/Not Resolved]

NARRATIVE: CASE EVENT DATE: 20181019
